FAERS Safety Report 9137257 (Version 1)
Quarter: 2013Q1

REPORT INFORMATION
  Report Type: Report from Study
  Country: US (occurrence: US)
  Receive Date: 20130304
  Receipt Date: 20130304
  Transmission Date: 20140127
  Serious: No
  Sender: FDA-Public Use
  Company Number: US-ABBOTT-12P-163-1025570-00

PATIENT
  Sex: Male

DRUGS (3)
  1. ANDROGEL [Suspect]
     Indication: BLOOD TESTOSTERONE DECREASED
     Dosage: 2 PACKETS
     Route: 061
     Dates: start: 2004, end: 201110
  2. ANDROGEL [Suspect]
     Dosage: 1 PACKET
     Route: 061
     Dates: start: 201204, end: 201206
  3. ANDROGEL [Suspect]
     Dosage: 2 PACKETS
     Route: 061
     Dates: start: 201206, end: 201211

REACTIONS (3)
  - Blood testosterone decreased [Not Recovered/Not Resolved]
  - Blood testosterone decreased [Not Recovered/Not Resolved]
  - Blood testosterone decreased [Not Recovered/Not Resolved]
